FAERS Safety Report 5153711-7 (Version None)
Quarter: 2006Q4

REPORT INFORMATION
  Report Type: 
  Country: None (occurrence: None)
  Receive Date: 20061118
  Receipt Date: 20061109
  Transmission Date: 20070319
  Serious: Yes (Hospitalization)
  Sender: FDA-Public Use
  Company Number: JP-JNJFOC-20061102680

PATIENT
  Sex: Female
  Weight: 50 kg

DRUGS (25)
  1. REMICADE [Suspect]
     Dosage: 4 INFUSIONS ON UNKNOWN DATES
     Route: 042
  2. REMICADE [Suspect]
     Route: 042
  3. REMICADE [Suspect]
     Route: 042
  4. REMICADE [Suspect]
     Route: 042
  5. REMICADE [Suspect]
     Indication: RHEUMATOID ARTHRITIS
     Route: 042
  6. RHEUMATREX [Suspect]
     Dosage: 6MG/W
     Route: 048
  7. RHEUMATREX [Suspect]
     Indication: RHEUMATOID ARTHRITIS
     Dosage: 4MG/W
     Route: 048
  8. ADRENAL HORMONE PREPARATION [Concomitant]
     Indication: RHEUMATOID ARTHRITIS
  9. PREDONINE [Concomitant]
  10. PREDNISOLONE [Concomitant]
     Indication: RHEUMATOID ARTHRITIS
     Route: 048
  11. MOBIC [Concomitant]
     Indication: RHEUMATOID ARTHRITIS
     Route: 048
  12. FOLIAMIN [Concomitant]
     Route: 048
  13. MAGNESIUM OXIDE [Concomitant]
     Route: 048
  14. ASPIRIN [Concomitant]
     Route: 048
  15. LANSOPRAZOLE [Concomitant]
     Route: 048
  16. PANALDINE [Concomitant]
     Route: 048
  17. TENORMIN [Concomitant]
     Route: 048
  18. ADALAT [Concomitant]
     Route: 048
  19. NU-LOTAN [Concomitant]
     Route: 048
  20. SELBEX [Concomitant]
     Route: 048
  21. ISOSORBIDE MONONITRATE [Concomitant]
     Route: 048
  22. OPALMON [Concomitant]
     Route: 048
  23. GLAKAY [Concomitant]
     Route: 048
  24. ACTONEL [Concomitant]
     Route: 048
  25. KALIMATE [Concomitant]
     Route: 048

REACTIONS (1)
  - BREAST CANCER [None]
